FAERS Safety Report 5895147-7 (Version None)
Quarter: 2008Q3

REPORT INFORMATION
  Report Type: 
  Country: None (occurrence: None)
  Receive Date: 20080924
  Receipt Date: 20080911
  Transmission Date: 20090109
  Serious: Yes (Hospitalization)
  Sender: FDA-Public Use
  Company Number: FR-PFIZER INC-2008077262

PATIENT
  Sex: Female
  Weight: 0.99 kg

DRUGS (1)
  1. VFEND ORAL SUSPENSION [Suspect]
     Route: 048
     Dates: start: 20080818, end: 20080818

REACTIONS (5)
  - DRUG ADMINISTRATION ERROR [None]
  - GLYCOSURIA [None]
  - HYPERGLYCAEMIA [None]
  - MEDICATION ERROR [None]
  - POLYURIA [None]
